FAERS Safety Report 5787442-7 (Version None)
Quarter: 2008Q2

REPORT INFORMATION
  Report Type: 
  Country: None (occurrence: None)
  Receive Date: 20080623
  Receipt Date: 20080623
  Transmission Date: 20081010
  Serious: Yes (Hospitalization)
  Sender: FDA-Public Use
  Company Number: None

PATIENT
  Age: 78 Year
  Sex: Female
  Weight: 70.8 kg

DRUGS (16)
  1. CLOFARABINE,  5MG,  GENZYME,  IND # 100992 [Suspect]
     Indication: 5Q-SYNDROME
     Dosage: 5MG QD X 10 DAYS PO
     Route: 048
     Dates: start: 20080529, end: 20080607
  2. SYNTHROID [Concomitant]
  3. SINGULAIR [Concomitant]
  4. LIPITOR [Concomitant]
  5. COUMADIN [Concomitant]
  6. GLYBURIDE [Concomitant]
  7. REGLAN [Concomitant]
  8. LASIX [Concomitant]
  9. POTASSIUM CHLORIDE [Concomitant]
  10. GABAPENTIN [Concomitant]
  11. PREVACID [Concomitant]
  12. FOLIC ACID [Concomitant]
  13. LORTAB [Concomitant]
  14. AMIODARONE HCL [Concomitant]
  15. CITALOPRAM HYDROBROMIDE [Concomitant]
  16. VALTREX [Concomitant]

REACTIONS (19)
  - ANOREXIA [None]
  - ASTHENIA [None]
  - DIZZINESS [None]
  - FAILURE TO THRIVE [None]
  - HERPES ZOSTER [None]
  - HUMERUS FRACTURE [None]
  - LIP ULCERATION [None]
  - LUNG CONSOLIDATION [None]
  - LYMPHADENOPATHY [None]
  - MUCOSAL INFLAMMATION [None]
  - NAUSEA [None]
  - NEUTROPENIA [None]
  - ORAL CANDIDIASIS [None]
  - PANCYTOPENIA [None]
  - PHARYNGEAL ERYTHEMA [None]
  - PNEUMONIA [None]
  - SPINAL COMPRESSION FRACTURE [None]
  - TACHYCARDIA [None]
  - VOMITING [None]
